FAERS Safety Report 24435644 (Version 6)
Quarter: 2025Q3

REPORT INFORMATION
  Report Type: Spontaneous
  Country: US (occurrence: US)
  Receive Date: 20241015
  Receipt Date: 20250924
  Transmission Date: 20251021
  Serious: Yes (Hospitalization, Other)
  Sender: MDD OPERATIONS
  Company Number: US-MDD US Operations-MDD202404-001442

PATIENT
  Age: 69 Year
  Sex: Male

DRUGS (7)
  1. APOKYN [Suspect]
     Active Substance: APOMORPHINE HYDROCHLORIDE
     Indication: Parkinson^s disease
     Route: 058
  2. APOKYN [Suspect]
     Active Substance: APOMORPHINE HYDROCHLORIDE
     Route: 058
     Dates: start: 20230907
  3. APOKYN [Suspect]
     Active Substance: APOMORPHINE HYDROCHLORIDE
     Route: 058
  4. APOKYN [Suspect]
     Active Substance: APOMORPHINE HYDROCHLORIDE
     Route: 058
     Dates: start: 202411
  5. APOKYN [Suspect]
     Active Substance: APOMORPHINE HYDROCHLORIDE
  6. RYTARY [Concomitant]
     Active Substance: CARBIDOPA\LEVODOPA
  7. ENTACAPONE [Concomitant]
     Active Substance: ENTACAPONE

REACTIONS (21)
  - Clostridium difficile infection [Unknown]
  - Loss of consciousness [Unknown]
  - Loss of consciousness [Unknown]
  - Large intestinal obstruction [Unknown]
  - Urinary tract infection [Unknown]
  - Syncope [Unknown]
  - Orthostatic hypotension [Unknown]
  - Upper limb fracture [Unknown]
  - Fall [Unknown]
  - Fall [Recovered/Resolved]
  - Head injury [Recovered/Resolved]
  - Syncope [Recovered/Resolved]
  - Hypertension [Unknown]
  - Nausea [Unknown]
  - Fall [Unknown]
  - Peripheral swelling [Unknown]
  - Joint swelling [Unknown]
  - Dizziness [Recovered/Resolved]
  - Therapy interrupted [Unknown]
  - Device physical property issue [Unknown]
  - Device malfunction [Unknown]

NARRATIVE: CASE EVENT DATE: 20240501
